FAERS Safety Report 7393637-1 (Version None)
Quarter: 2011Q1

REPORT INFORMATION
  Report Type: 
  Country: None (occurrence: None)
  Receive Date: 20110331
  Receipt Date: 20110331
  Transmission Date: 20110831
  Serious: Yes (Other)
  Sender: FDA-Public Use
  Company Number: None

PATIENT
  Age: 82 Year
  Sex: Female
  Weight: 56.6996 kg

DRUGS (2)
  1. FENTANYL [Suspect]
     Indication: NEURALGIA
     Dosage: 1 PATCH 48 HOURS
     Dates: start: 20110323, end: 20110327
  2. FENTANYL [Suspect]
     Indication: NEURALGIA
     Dosage: 1 PATCH 48 HOURS
     Dates: start: 20110325, end: 20110329

REACTIONS (3)
  - DRUG INEFFECTIVE [None]
  - PRODUCT QUALITY ISSUE [None]
  - PRODUCT FORMULATION ISSUE [None]
